FAERS Safety Report 9433867 (Version 1)
Quarter: 2013Q3

REPORT INFORMATION
  Report Type: Spontaneous
  Country: IT (occurrence: IT)
  Receive Date: 20130731
  Receipt Date: 20130731
  Transmission Date: 20140515
  Serious: Yes (Hospitalization)
  Sender: FDA-Public Use
  Company Number: IT-ABBOTT-13X-083-1125940-00

PATIENT
  Age: 50 Year
  Sex: Female

DRUGS (7)
  1. DEPAKIN CHRONO [Suspect]
     Indication: SUICIDE ATTEMPT
     Dosage: 6000 MILLIGRAM(S); TOTAL, EXTENDED RELEASE
     Route: 048
     Dates: start: 20130615, end: 20130615
  2. METFORMIN HYDROCHLORIDE [Suspect]
     Indication: SUICIDE ATTEMPT
     Route: 048
     Dates: start: 20130615, end: 20130615
  3. TACHIPIRINA [Suspect]
     Indication: SUICIDE ATTEMPT
     Route: 048
     Dates: start: 20130615, end: 20130615
  4. MOMENT 200 [Suspect]
     Indication: SUICIDE ATTEMPT
     Route: 048
     Dates: start: 20130615, end: 20130615
  5. IBUPROFEN [Suspect]
     Indication: SUICIDE ATTEMPT
     Route: 048
     Dates: start: 20130615, end: 20130615
  6. ENANTYUM [Suspect]
     Indication: SUICIDE ATTEMPT
     Route: 048
     Dates: start: 20130615, end: 20130615
  7. ZERINOL [Suspect]
     Indication: SUICIDE ATTEMPT
     Route: 048
     Dates: start: 20130615, end: 20130615

REACTIONS (6)
  - Toxicity to various agents [Unknown]
  - Headache [Unknown]
  - Intentional overdose [Unknown]
  - Somnolence [Unknown]
  - Dysarthria [Unknown]
  - Coma scale abnormal [Unknown]
